FAERS Safety Report 9780556 (Version 3)
Quarter: 2014Q1

REPORT INFORMATION
  Report Type: Report from Study
  Country: BR (occurrence: BR)
  Receive Date: 20131224
  Receipt Date: 20140130
  Transmission Date: 20141002
  Serious: Yes (Hospitalization)
  Sender: FDA-Public Use
  Company Number: BR-ROCHE-1324733

PATIENT
  Age: 74 Year
  Sex: Female
  Weight: 57 kg

DRUGS (11)
  1. MABTHERA [Suspect]
     Indication: RHEUMATOID ARTHRITIS
     Dosage: THE LATEST INFUSION WAS PERFORMED ON 31-JUL-2013 (100 MG/10 ML 2 AMPULES ).
     Route: 042
     Dates: start: 20130701
  2. LOSARTAN [Concomitant]
  3. ARAVA [Concomitant]
  4. OS-CAL [Concomitant]
  5. DEPURA [Concomitant]
  6. HYDROCHLOROTHIAZIDE [Concomitant]
  7. ATENOLOL [Concomitant]
  8. PREDNISONE [Concomitant]
  9. NEXIUM [Concomitant]
  10. PURAN T4 [Concomitant]
  11. XARELTO [Concomitant]

REACTIONS (4)
  - Pneumonia [Recovered/Resolved]
  - Pulmonary embolism [Recovered/Resolved]
  - Gastric haemorrhage [Recovered/Resolved]
  - Anaemia [Recovered/Resolved]
